FAERS Safety Report 7503269-X (Version None)
Quarter: 2011Q2

REPORT INFORMATION
  Report Type: 
  Country: None (occurrence: None)
  Receive Date: 20110518
  Receipt Date: 20110512
  Transmission Date: 20111010
  Serious: Yes (Hospitalization)
  Sender: FDA-Public Use
  Company Number: DKLU1070536

PATIENT
  Age: 21 Month
  Sex: Female

DRUGS (2)
  1. ACTH [Concomitant]
  2. SABRIL [Suspect]
     Indication: INFANTILE SPASMS
     Dosage: ORAL
     Route: 048
     Dates: start: 20110301

REACTIONS (2)
  - PYREXIA [None]
  - NEUTROPHIL COUNT DECREASED [None]
